FAERS Safety Report 10358756 (Version 1)
Quarter: 2014Q3

REPORT INFORMATION
  Report Type: Spontaneous
  Country: CA (occurrence: CA)
  Receive Date: 20140804
  Receipt Date: 20140804
  Transmission Date: 20150326
  Serious: Yes (Other)
  Sender: FDA-Public Use
  Company Number: CA-ROCHE-1442671

PATIENT
  Age: 63 Year
  Sex: Female

DRUGS (3)
  1. RIBAVIRIN. [Suspect]
     Active Substance: RIBAVIRIN
     Indication: CHRONIC HEPATITIS C
     Route: 065
     Dates: end: 20140604
  2. SOVALDI [Suspect]
     Active Substance: SOFOSBUVIR
     Indication: CHRONIC HEPATITIS C
     Route: 065
     Dates: end: 20140604
  3. PEGASYS [Suspect]
     Active Substance: PEGINTERFERON ALFA-2A
     Indication: CHRONIC HEPATITIS C
     Dosage: 180MCG/0.5MG WITH 35 TABLETS
     Route: 065
     Dates: end: 20140604

REACTIONS (5)
  - Oral mucosal blistering [Unknown]
  - Lip disorder [Unknown]
  - Dizziness [Unknown]
  - Disturbance in attention [Unknown]
  - Eczema [Unknown]

NARRATIVE: CASE EVENT DATE: 20140511
